FAERS Safety Report 24349959 (Version 1)
Quarter: 2024Q3

REPORT INFORMATION
  Report Type: Spontaneous
  Country: US (occurrence: US)
  Receive Date: 20240923
  Receipt Date: 20240923
  Transmission Date: 20241017
  Serious: Yes (Hospitalization)
  Sender: CSL BEHRING
  Company Number: US-BEH-2024178837

PATIENT
  Sex: Female

DRUGS (1)
  1. HIZENTRA [Suspect]
     Active Substance: HUMAN IMMUNOGLOBULIN G
     Indication: Selective IgG subclass deficiency
     Dosage: 30 G, EVERY 2 WEEKS
     Route: 058
     Dates: start: 201906

REACTIONS (3)
  - Hypersensitivity [Unknown]
  - Sinusitis [Unknown]
  - Tachycardia [Unknown]
